FAERS Safety Report 22175257 (Version 2)
Quarter: 2023Q2

REPORT INFORMATION
  Report Type: Spontaneous
  Country: US (occurrence: US)
  Receive Date: 20230405
  Receipt Date: 20230523
  Transmission Date: 20230722
  Serious: No
  Sender: FDA-Public Use
  Company Number: US-TAKEDA-2023TUS032767

PATIENT
  Sex: Female
  Weight: 80 kg

DRUGS (17)
  1. LIALDA [Suspect]
     Active Substance: MESALAMINE
     Indication: Product used for unknown indication
     Dosage: 1.2 GRAM, QD
     Route: 048
  2. ACETAMINOPHEN AND CODEINE [Concomitant]
     Active Substance: ACETAMINOPHEN\CODEINE PHOSPHATE
  3. SUTAB [Concomitant]
     Active Substance: MAGNESIUM SULFATE\POTASSIUM CHLORIDE\SODIUM SULFATE
  4. VITAMIN C [Concomitant]
     Active Substance: ASCORBIC ACID
  5. CETIRIZINE [Concomitant]
     Active Substance: CETIRIZINE HYDROCHLORIDE
  6. FLONASE [Concomitant]
     Active Substance: FLUTICASONE PROPIONATE
  7. TRAMADOL [Concomitant]
     Active Substance: TRAMADOL
  8. LEVOTHYROXINE [Concomitant]
     Active Substance: LEVOTHYROXINE
  9. LIDOCAINE [Concomitant]
     Active Substance: LIDOCAINE
  10. PRAVASTATIN [Concomitant]
     Active Substance: PRAVASTATIN
  11. LISINOPRIL [Concomitant]
     Active Substance: LISINOPRIL
  12. LORAZEPAM [Concomitant]
     Active Substance: LORAZEPAM
  13. OXYCODONE AND ACETAMINOPHEN [Concomitant]
     Active Substance: ACETAMINOPHEN\OXYCODONE HYDROCHLORIDE
  14. LOPERAMIDE [Concomitant]
     Active Substance: LOPERAMIDE
  15. OMEPRAZOLE [Concomitant]
     Active Substance: OMEPRAZOLE
  16. PROCHLORPERAZINE [Concomitant]
     Active Substance: PROCHLORPERAZINE
  17. TRIAMCINOLONE [Concomitant]
     Active Substance: TRIAMCINOLONE

REACTIONS (1)
  - Product residue present [Unknown]
